FAERS Safety Report 8565875-3 (Version None)
Quarter: 2012Q3

REPORT INFORMATION
  Report Type: 
  Country: None (occurrence: None)
  Receive Date: 20120724
  Receipt Date: 20120711
  Transmission Date: 20120928
  Serious: Yes (Death, Other)
  Sender: FDA-Public Use
  Company Number: 2012P1050083

PATIENT
  Age: 56 Year
  Sex: Female

DRUGS (7)
  1. LEVETIRACETAM [Suspect]
     Indication: ACCIDENTAL POISONING
  2. NORDIAZEPAM (NO PREF. NAME) [Suspect]
     Indication: ACCIDENTAL POISONING
  3. MEPERIDINE HYDROCHLORIDE [Suspect]
     Indication: ACCIDENTAL POISONING
  4. MEPROBAMATE [Suspect]
     Indication: ACCIDENTAL POISONING
  5. DIAZEPAM [Suspect]
  6. MEPERIDINE HYDROCHLORIDE [Suspect]
     Indication: ACCIDENTAL POISONING
  7. TRAZODONE HCL [Suspect]
     Indication: ACCIDENTAL POISONING

REACTIONS (1)
  - MULTIPLE DRUG OVERDOSE ACCIDENTAL [None]
